FAERS Safety Report 14612188 (Version 1)
Quarter: 2018Q1

REPORT INFORMATION
  Report Type: Report from Study
  Country: US (occurrence: US)
  Receive Date: 20180308
  Receipt Date: 20180308
  Transmission Date: 20180509
  Serious: Yes (Other)
  Sender: FDA-Public Use
  Company Number: US-GILEAD-2018-0324734

PATIENT
  Age: 71 Year
  Sex: Female

DRUGS (2)
  1. AMBRISENTAN [Suspect]
     Active Substance: AMBRISENTAN
     Indication: PRODUCT USED FOR UNKNOWN INDICATION
     Dosage: 10 MG, UNK
     Route: 065
     Dates: start: 20111206
  2. OXYGEN. [Concomitant]
     Active Substance: OXYGEN

REACTIONS (5)
  - Spinal column stenosis [Unknown]
  - Arterial disorder [Not Recovered/Not Resolved]
  - Arthropathy [Not Recovered/Not Resolved]
  - Dementia Alzheimer^s type [Not Recovered/Not Resolved]
  - Depression [Not Recovered/Not Resolved]

NARRATIVE: CASE EVENT DATE: 2015
